FAERS Safety Report 10461263 (Version 1)
Quarter: 2014Q3

REPORT INFORMATION
  Report Type: Spontaneous
  Country: GB (occurrence: None)
  Receive Date: 20140916
  Receipt Date: 20140916
  Transmission Date: 20150326
  Serious: Yes (Other)
  Sender: FDA-Public Use
  Company Number: ABR_01814_2014

PATIENT
  Age: 56 Year
  Sex: Female

DRUGS (14)
  1. GLYCERYL TRINITRATE (GLYCERYL TRINITRATE) [Suspect]
     Active Substance: NITROGLYCERIN
     Indication: CHEST PAIN
     Dates: start: 20140821
  2. ALLOPURINOL. [Concomitant]
     Active Substance: ALLOPURINOL
  3. BETAHISTINE [Concomitant]
     Active Substance: BETAHISTINE
  4. COCODAMOL [Concomitant]
     Active Substance: ACETAMINOPHEN\CODEINE PHOSPHATE
  5. MYCOPHENOLATE MOFETIL. [Concomitant]
     Active Substance: MYCOPHENOLATE MOFETIL
  6. OMEPRAZOLE. [Concomitant]
     Active Substance: OMEPRAZOLE
  7. CALCICHEW D3 [Concomitant]
     Active Substance: CALCIUM\CHOLECALCIFEROL
  8. MIRTAZAPINE. [Concomitant]
     Active Substance: MIRTAZAPINE
  9. ATORVASTATIN [Concomitant]
     Active Substance: ATORVASTATIN
  10. DOXAZOSIN [Concomitant]
     Active Substance: DOXAZOSIN\DOXAZOSIN MESYLATE
  11. CICLOSPORIN [Concomitant]
     Active Substance: CYCLOSPORINE
  12. SODIUM BICARBONATE. [Concomitant]
     Active Substance: SODIUM BICARBONATE
  13. ASPIRIN. [Concomitant]
     Active Substance: ASPIRIN
  14. CICLOSPORIN [Concomitant]
     Active Substance: CYCLOSPORINE

REACTIONS (5)
  - Orthostatic hypotension [None]
  - Unresponsive to stimuli [None]
  - Bradycardia [None]
  - Syncope [None]
  - Hypotension [None]

NARRATIVE: CASE EVENT DATE: 2014
